FAERS Safety Report 9931591 (Version 1)
Quarter: 2014Q1

REPORT INFORMATION
  Report Type: Spontaneous
  Country: CA (occurrence: None)
  Receive Date: 20140225
  Receipt Date: 20140225
  Transmission Date: 20141002
  Serious: Yes (Death, Hospitalization)
  Sender: FDA-Public Use
  Company Number: FK201400609

PATIENT
  Age: 4 Month
  Sex: Female

DRUGS (7)
  1. CARBOPLATIN [Suspect]
     Indication: RHABDOID TUMOUR
     Dosage: 17 MG/KG, 3 COURSES
  2. THIOTEPA [Suspect]
     Indication: RHABDOID TUMOUR
     Dosage: 10 MG/KG, 3 COURSES
  3. METHOTREXATE (METHOTREXATE) [Concomitant]
  4. VINCRISTGINE (VINCRISTINE) [Concomitant]
  5. ETOPOSIDE (ETOPOSIDE) [Concomitant]
  6. CYCLOPHOSPHAMIDE (CYCLOPHOSPHAMIDE) [Suspect]
  7. CISPLATIN (CISPLATIN) [Suspect]

REACTIONS (3)
  - Pulmonary hypertension [None]
  - Tachypnoea [None]
  - Tachycardia [None]
